FAERS Safety Report 16571723 (Version 1)
Quarter: 2019Q3

REPORT INFORMATION
  Report Type: Spontaneous
  Country: US (occurrence: US)
  Receive Date: 20190715
  Receipt Date: 20190715
  Transmission Date: 20191004
  Serious: Yes (Other)
  Sender: FDA-Public Use
  Company Number: US-PFIZER INC-2019294976

PATIENT
  Sex: Female

DRUGS (1)
  1. PREMARIN [Suspect]
     Active Substance: ESTROGENS, CONJUGATED
     Dosage: 0.2 G, CYCLIC (DAILY FOR 2 WEEKS, THEN 1-2 TIMES PER WEEK THEREAFTER)
     Route: 067

REACTIONS (1)
  - Vaginal haemorrhage [Unknown]
